FAERS Safety Report 5636876-X (Version None)
Quarter: 2008Q1

REPORT INFORMATION
  Report Type: 
  Country: None (occurrence: None)
  Receive Date: 20080219
  Receipt Date: 20080206
  Transmission Date: 20080703
  Serious: Yes (Other)
  Sender: FDA-Public Use
  Company Number: PHMT2008CA00493

PATIENT
  Age: 18 Year
  Sex: Male

DRUGS (1)
  1. LAMISIL [Suspect]
     Indication: WOUND INFECTION FUNGAL
     Dosage: QD; TOPICAL
     Route: 061
     Dates: start: 20080117

REACTIONS (2)
  - SUPERINFECTION [None]
  - THERAPEUTIC PRODUCT CONTAMINATION [None]
